FAERS Safety Report 8421805-6 (Version None)
Quarter: 2012Q2

REPORT INFORMATION
  Report Type: 
  Country: None (occurrence: None)
  Receive Date: 20120608
  Receipt Date: 20120529
  Transmission Date: 20120825
  Serious: Yes (Hospitalization, Disabling)
  Sender: FDA-Public Use
  Company Number: JP-CELGENEUS-087-21660-12052897

PATIENT
  Age: 61 Week
  Sex: Female
  Weight: 86 kg

DRUGS (2)
  1. ZOMETA [Concomitant]
     Dosage: 4 MILLIGRAM
     Route: 041
     Dates: start: 20101201
  2. ABRAXANE [Suspect]
     Indication: BREAST CANCER
     Dosage: 400 MILLIGRAM
     Route: 041
     Dates: start: 20110628, end: 20120214

REACTIONS (2)
  - HEMIPLEGIA [None]
  - ALTERED STATE OF CONSCIOUSNESS [None]
